FAERS Safety Report 7769336-0 (Version None)
Quarter: 2011Q3

REPORT INFORMATION
  Report Type: 
  Country: None (occurrence: None)
  Receive Date: 20110922
  Receipt Date: 20110920
  Transmission Date: 20111222
  Serious: Yes (Other)
  Sender: FDA-Public Use
  Company Number: US-PFIZER INC-2011223141

PATIENT
  Sex: Female

DRUGS (2)
  1. GEODON [Suspect]
     Dosage: 20 MG, UNK
  2. GEODON [Suspect]
     Dosage: 60 MG, UNK

REACTIONS (9)
  - HAEMORRHAGE [None]
  - LIP SWELLING [None]
  - INSOMNIA [None]
  - POLYURIA [None]
  - DRY MOUTH [None]
  - WEIGHT DECREASED [None]
  - DYSPNOEA [None]
  - HEART RATE INCREASED [None]
  - FEELING ABNORMAL [None]
